FAERS Safety Report 25878642 (Version 2)
Quarter: 2025Q4

REPORT INFORMATION
  Report Type: Spontaneous
  Country: US (occurrence: US)
  Receive Date: 20251003
  Receipt Date: 20251023
  Transmission Date: 20260118
  Serious: No
  Sender: BAUSCH AND LOMB
  Company Number: US-BAUSCHBL-2025BNL029164

PATIENT
  Age: 81 Year
  Sex: Female

DRUGS (1)
  1. LATANOPROST [Suspect]
     Active Substance: LATANOPROST
     Indication: Product used for unknown indication
     Route: 047

REACTIONS (5)
  - Blister [Unknown]
  - Ligament sprain [Unknown]
  - Product package associated injury [Unknown]
  - Product closure removal difficult [Unknown]
  - Therapy interrupted [Unknown]
